FAERS Safety Report 8716219 (Version 5)
Quarter: 2013Q2

REPORT INFORMATION
  Report Type: Report from Study
  Country: JP (occurrence: JP)
  Receive Date: 20120810
  Receipt Date: 20130614
  Transmission Date: 20140414
  Serious: Yes (Hospitalization, Other)
  Sender: FDA-Public Use
  Company Number: JP-009507513-1207JPN007959

PATIENT
  Age: 72 Year
  Sex: Male
  Weight: 43 kg

DRUGS (12)
  1. PEGINTRON [Suspect]
     Indication: CHRONIC HEPATITIS C
     Dosage: 40 MICROGRAM/BODY/WEEKLY
     Route: 058
     Dates: start: 20120403, end: 20120506
  2. PEGINTRON [Suspect]
     Dosage: 20MICROGRAM/BODY/WEEK
     Route: 058
     Dates: start: 20120507, end: 20120513
  3. PEGINTRON [Suspect]
     Dosage: 40MICROGRAM/BODY/WEEK
     Route: 058
     Dates: start: 20120514, end: 20120610
  4. REBETOL [Suspect]
     Indication: CHRONIC HEPATITIS C
     Dosage: 400 MG, QD
     Route: 048
     Dates: start: 20120403, end: 20120506
  5. REBETOL [Suspect]
     Dosage: 200 MG, QD
     Route: 048
     Dates: start: 20120507, end: 20120612
  6. TELAVIC [Suspect]
     Indication: CHRONIC HEPATITIS C
     Dosage: 1500 MG, QD
     Route: 048
     Dates: start: 20120403, end: 20120610
  7. TELAVIC [Suspect]
     Dosage: 750 MG, QD
     Route: 048
     Dates: start: 20120611, end: 20120612
  8. GASTER D [Concomitant]
     Indication: PROPHYLAXIS
     Dosage: 20 MG, QD
     Route: 048
     Dates: start: 20120423, end: 20120618
  9. SLOW-K [Concomitant]
     Indication: HYPOKALAEMIA
     Dosage: 1200 MG, QD
     Route: 048
     Dates: start: 20120521, end: 20120612
  10. GASMOTIN [Concomitant]
     Indication: PROPHYLAXIS
     Dosage: 15 MG, QD
     Route: 048
     Dates: start: 20120604, end: 20120618
  11. TRAVELMIN (DIPHENHYDRAMINE SALICYLATE (+) DYPHYLLINE) [Concomitant]
     Indication: DECREASED APPETITE
     Dosage: 3 DF, QD
     Route: 048
     Dates: start: 20120612, end: 20120618
  12. SOLITA T-3 [Concomitant]
     Indication: DECREASED APPETITE
     Dosage: 500 ML, QD
     Route: 041
     Dates: start: 20120611, end: 20120619

REACTIONS (3)
  - Anaemia [Recovered/Resolved]
  - Vomiting [Recovering/Resolving]
  - Decreased appetite [Recovering/Resolving]
